FAERS Safety Report 7266336-4 (Version None)
Quarter: 2011Q1

REPORT INFORMATION
  Report Type: 
  Country: None (occurrence: None)
  Receive Date: 20110120
  Receipt Date: 20110110
  Transmission Date: 20110831
  Serious: Yes (Death)
  Sender: FDA-Public Use
  Company Number: AXC-2011-000017

PATIENT
  Age: 75 Year
  Sex: Male

DRUGS (2)
  1. ANTIHYPERTENSIVES [Concomitant]
  2. PHOTOFRIN [Suspect]
     Indication: BILE DUCT CANCER
     Dosage: 150 MG, SINGLE, INTRAVENOUS
     Route: 042
     Dates: start: 20110101, end: 20110101

REACTIONS (3)
  - RENAL FAILURE ACUTE [None]
  - HYPOTENSION [None]
  - HEPATIC NECROSIS [None]
